FAERS Safety Report 9159956 (Version 1)
Quarter: 2013Q1

REPORT INFORMATION
  Report Type: Spontaneous
  Country: TR (occurrence: None)
  Receive Date: 20130220
  Receipt Date: 20130220
  Transmission Date: 20140127
  Serious: Yes (Congenital Anomaly)
  Sender: FDA-Public Use
  Company Number: 2013-02601

PATIENT
  Sex: Male
  Weight: 1.6 kg

DRUGS (1)
  1. PROPYLTHIOURACIL [Suspect]
     Indication: BASEDOW^S DISEASE
     Dosage: FROM 12 WEEKS OF GESTATION UNTIL TERM
     Route: 064

REACTIONS (6)
  - Goitre congenital [None]
  - Foetal exposure during pregnancy [None]
  - Caesarean section [None]
  - Decreased activity [None]
  - Constipation [None]
  - Apnoea neonatal [None]
